FAERS Safety Report 9466535 (Version 3)
Quarter: 2013Q3

REPORT INFORMATION
  Report Type: Spontaneous
  Country: US (occurrence: US)
  Receive Date: 20130820
  Receipt Date: 20130902
  Transmission Date: 20140515
  Serious: Yes (Other)
  Sender: FDA-Public Use
  Company Number: US-JNJFOC-20130806374

PATIENT
  Age: 72 Year
  Sex: Male
  Weight: 94.5 kg

DRUGS (27)
  1. XARELTO [Suspect]
     Indication: DEEP VEIN THROMBOSIS
     Dosage: STRENGTH 15MG
     Route: 048
     Dates: start: 20130801, end: 20130809
  2. GLIPIZIDE [Concomitant]
     Route: 065
  3. BUMETANIDE [Concomitant]
     Route: 065
  4. LIPITOR [Concomitant]
     Route: 065
  5. ASA [Concomitant]
     Route: 065
  6. ISOSORBIDE [Concomitant]
     Route: 065
  7. ZETIA [Concomitant]
     Route: 065
  8. NITROGLYCERIN [Concomitant]
     Route: 065
  9. POTASSIUM CHLORIDE [Concomitant]
     Route: 065
  10. ADVAIR [Concomitant]
     Route: 065
  11. PERCOCET [Concomitant]
     Route: 065
  12. SOTALOL [Concomitant]
     Route: 065
  13. CARDIZEM [Concomitant]
     Route: 065
  14. IMDUR [Concomitant]
     Route: 065
  15. LUNESTA [Concomitant]
     Route: 065
  16. LOSARTAN [Concomitant]
     Route: 065
  17. VESICARE [Concomitant]
     Route: 065
  18. FINASTERIDE [Concomitant]
     Route: 065
  19. HYTRIN [Concomitant]
     Route: 065
  20. PREDNISONE [Concomitant]
     Route: 065
  21. COMBIVENT [Concomitant]
     Route: 065
  22. LYRICA [Concomitant]
     Route: 065
  23. ASCORBIC ACID [Concomitant]
     Route: 065
  24. OMEPRAZOLE [Concomitant]
     Route: 065
  25. UNSPECIFIED ROBITUSSIN [Concomitant]
     Route: 065
  26. A MULTIVITAMIN [Concomitant]
     Route: 065
  27. FERROUS SULFATE [Concomitant]
     Route: 065

REACTIONS (1)
  - Haematoma [Recovering/Resolving]
